FAERS Safety Report 9163470 (Version 1)
Quarter: 2013Q1

REPORT INFORMATION
  Report Type: Report from Study
  Country: HU (occurrence: HU)
  Receive Date: 20130314
  Receipt Date: 20130314
  Transmission Date: 20140127
  Serious: Yes (Death)
  Sender: FDA-Public Use
  Company Number: HU-ROCHE-1200445

PATIENT
  Sex: Male

DRUGS (2)
  1. BEVACIZUMAB [Suspect]
     Indication: RENAL CELL CARCINOMA
     Dosage: LAST DOSE PRIOR TO SAE: 23/MAY/2012
     Route: 065
  2. INTERFERON ALFA-2A [Suspect]
     Indication: RENAL CELL CARCINOMA
     Dosage: LAST DOSE PRIOR TO SAE: 23/MAY/2012
     Route: 065

REACTIONS (1)
  - Disease progression [Fatal]
